FAERS Safety Report 9580485 (Version 7)
Quarter: 2015Q1

REPORT INFORMATION
  Report Type: Report from Study
  Country: US (occurrence: US)
  Receive Date: 20131002
  Receipt Date: 20150115
  Transmission Date: 20150721
  Serious: Yes (Hospitalization, Other)
  Sender: FDA-Public Use
  Company Number: US-ALEXION PHARMACEUTICALS INC.-A201302486

PATIENT

DRUGS (1)
  1. SOLIRIS [Suspect]
     Active Substance: ECULIZUMAB
     Indication: HAEMOLYTIC URAEMIC SYNDROME
     Dosage: 900 MG, Q2W
     Route: 042
     Dates: start: 20130104

REACTIONS (17)
  - Pain [Unknown]
  - Pain [Unknown]
  - Bone pain [Not Recovered/Not Resolved]
  - Headache [Unknown]
  - Nasopharyngitis [Unknown]
  - Myalgia [Not Recovered/Not Resolved]
  - Tooth extraction [Unknown]
  - Bronchitis [Not Recovered/Not Resolved]
  - Nausea [Unknown]
  - Nausea [Not Recovered/Not Resolved]
  - Catheter placement [Unknown]
  - Pain [Not Recovered/Not Resolved]
  - Unevaluable event [Unknown]
  - Headache [Not Recovered/Not Resolved]
  - Urinary tract infection [Recovered/Resolved]
  - Nausea [Not Recovered/Not Resolved]
  - Paraesthesia [Unknown]

NARRATIVE: CASE EVENT DATE: 20130904
